FAERS Safety Report 18344045 (Version 2)
Quarter: 2020Q4

REPORT INFORMATION
  Report Type: Spontaneous
  Country: DE (occurrence: DE)
  Receive Date: 20201005
  Receipt Date: 20201202
  Transmission Date: 20210114
  Serious: Yes (Other)
  Sender: FDA-Public Use
  Company Number: DE-MYLANLABS-2020M1083013

PATIENT
  Age: 27 Year
  Sex: Male

DRUGS (2)
  1. TRAMADOL. [Interacting]
     Active Substance: TRAMADOL
     Indication: PRODUCT USED FOR UNKNOWN INDICATION
     Dosage: 200 MILLIGRAM, QD (100 MILLIGRAM, 2/DAY)
     Route: 065
  2. AMITRIPTYLINE [Suspect]
     Active Substance: AMITRIPTYLINE
     Indication: PRODUCT USED FOR UNKNOWN INDICATION
     Dosage: 150 MILLIGRAM, QD (75 MILLIGRAM, 2/DAY)
     Route: 065

REACTIONS (3)
  - Drug interaction [Unknown]
  - Dysuria [Unknown]
  - Urge incontinence [Unknown]

NARRATIVE: CASE EVENT DATE: 20130606
